FAERS Safety Report 11779846 (Version 2)
Quarter: 2015Q4

REPORT INFORMATION
  Report Type: Spontaneous
  Country: IT (occurrence: IT)
  Receive Date: 20151125
  Receipt Date: 20151210
  Transmission Date: 20160304
  Serious: Yes (Life-Threatening, Other)
  Sender: FDA-Public Use
  Company Number: IT-TEVA-611758ACC

PATIENT
  Age: 59 Year
  Sex: Male
  Weight: 82 kg

DRUGS (2)
  1. CAPECITABINA MEDAC - 500 MG COMPRESSA RIVESTITA CON FILM [Suspect]
     Active Substance: CAPECITABINE
     Indication: COLON CANCER
     Dosage: 3 G CYCLICAL
     Route: 048
     Dates: start: 20150909
  2. OXALIPLATINO TEVA - 5 MG/ML CONCENTRATO PER SOLUZIONE PER INFUSIONE [Suspect]
     Active Substance: OXALIPLATIN
     Indication: COLON CANCER
     Dosage: 130 MG/M2 CYCLICAL
     Route: 042
     Dates: start: 20150909

REACTIONS (5)
  - Mucous stools [Unknown]
  - Pain in extremity [Not Recovered/Not Resolved]
  - Rectal discharge [Not Recovered/Not Resolved]
  - Mastication disorder [Not Recovered/Not Resolved]
  - Diarrhoea [Not Recovered/Not Resolved]

NARRATIVE: CASE EVENT DATE: 20151010
